FAERS Safety Report 6880306-7 (Version None)
Quarter: 2010Q3

REPORT INFORMATION
  Report Type: 
  Country: None (occurrence: None)
  Receive Date: 20100728
  Receipt Date: 20100716
  Transmission Date: 20110219
  Serious: Yes (Other)
  Sender: FDA-Public Use
  Company Number: US-ALLERGAN-1009256US

PATIENT
  Age: 26 Year
  Sex: Male

DRUGS (1)
  1. BOTOX [Suspect]
     Indication: PAIN
     Dosage: UNK
     Route: 030

REACTIONS (2)
  - CHEST DISCOMFORT [None]
  - COLLAPSE OF LUNG [None]
